FAERS Safety Report 4603827-6 (Version None)
Quarter: 2005Q1

REPORT INFORMATION
  Report Type: 
  Country: None (occurrence: None)
  Receive Date: 20050308
  Receipt Date: 20050222
  Transmission Date: 20050727
  Serious: Yes (Hospitalization)
  Sender: FDA-Public Use
  Company Number: 230665K05USA

PATIENT
  Age: 63 Year
  Sex: Female

DRUGS (1)
  1. REBIF [Suspect]
     Indication: MULTIPLE SCLEROSIS
     Dosage: 44 MCG, 3 IN 1 WEEKS, SUBCUTANEOUS
     Route: 058
     Dates: start: 20020322

REACTIONS (9)
  - CATHETER RELATED INFECTION [None]
  - DIVERTICULITIS [None]
  - ERYTHEMA [None]
  - GALLBLADDER DISORDER [None]
  - KNEE ARTHROPLASTY [None]
  - NAIL DISCOLOURATION [None]
  - POSTOPERATIVE INFECTION [None]
  - SEPSIS [None]
  - WEIGHT DECREASED [None]
